FAERS Safety Report 15996892 (Version 1)
Quarter: 2019Q1

REPORT INFORMATION
  Report Type: Spontaneous
  Country: DE (occurrence: DE)
  Receive Date: 20190222
  Receipt Date: 20190222
  Transmission Date: 20190418
  Serious: Yes (Other)
  Sender: FDA-Public Use
  Company Number: DE-SA-2019SA014064

PATIENT
  Age: 55 Year
  Sex: Male

DRUGS (1)
  1. TRIAMCINOLONE ACETONIDE. [Suspect]
     Active Substance: TRIAMCINOLONE ACETONIDE
     Dosage: 4 MG, UNK
     Route: 031

REACTIONS (3)
  - Disease recurrence [Recovered/Resolved]
  - Intraocular pressure increased [Recovered/Resolved]
  - Cystoid macular oedema [Recovered/Resolved]
